FAERS Safety Report 7469998-1 (Version None)
Quarter: 2011Q2

REPORT INFORMATION
  Report Type: 
  Country: None (occurrence: None)
  Receive Date: 20110510
  Receipt Date: 20110506
  Transmission Date: 20111010
  Serious: Yes (Hospitalization)
  Sender: FDA-Public Use
  Company Number: DE-ROCHE-775316

PATIENT
  Sex: Female

DRUGS (1)
  1. ROFERON-A [Suspect]
     Indication: SKIN CANCER
     Dosage: DAILY
     Route: 058
     Dates: start: 20101101

REACTIONS (6)
  - INFLUENZA LIKE ILLNESS [None]
  - FATIGUE [None]
  - NAUSEA [None]
  - HYPOTHYROIDISM [None]
  - LYMPHADENOPATHY [None]
  - DIARRHOEA [None]
